FAERS Safety Report 9459815 (Version 2)
Quarter: 2013Q3

REPORT INFORMATION
  Report Type: Spontaneous
  Country: FR (occurrence: FR)
  Receive Date: 20130815
  Receipt Date: 20130927
  Transmission Date: 20140515
  Serious: Yes (Hospitalization)
  Sender: FDA-Public Use
  Company Number: FR-PFIZER INC-2013234979

PATIENT
  Age: 66 Year
  Sex: Female

DRUGS (16)
  1. NEURONTIN [Suspect]
     Indication: BURNING SENSATION
     Dosage: 300 MG, 3X/DAY
     Route: 048
     Dates: start: 20130617, end: 20130711
  2. MYOLASTAN [Suspect]
     Dosage: 0.5 DF IN THE MORNING AND AT LUNCH AND 1 DF IN THE EVENING
     Dates: start: 20130704, end: 20130716
  3. PROGYNOVA [Concomitant]
     Dosage: UNK
  4. ESTIMA [Concomitant]
     Dosage: UNK
  5. IBUPROFEN [Concomitant]
     Dosage: UNK
  6. PARACETAMOL WITH CODEINE [Concomitant]
     Dosage: UNK
  7. DUPHALAC [Concomitant]
     Dosage: UNK
  8. DEBRIDAT ^JOUVEINAL^ [Concomitant]
  9. CORTANCYL [Concomitant]
     Dosage: UNK
     Dates: start: 20130626
  10. LOVENOX [Concomitant]
     Dosage: UNK
  11. MOVICOL [Concomitant]
     Dosage: UNK
     Dates: start: 20130626
  12. FRAGMIN [Concomitant]
     Dosage: UNK
     Dates: start: 20130626
  13. EUPANTOL [Concomitant]
     Dosage: UNK
     Dates: start: 20130626
  14. TITANOREINE [Concomitant]
     Dosage: UNK
     Dates: start: 20130626
  15. NORFLOXACIN [Concomitant]
     Dosage: UNK
     Dates: start: 20130701
  16. TOPALGIC [Concomitant]
     Dosage: UNK
     Dates: start: 20130703

REACTIONS (5)
  - Neutropenia [Recovered/Resolved]
  - Urticaria [Recovering/Resolving]
  - Rash pruritic [Recovered/Resolved]
  - Eczema [Recovered/Resolved]
  - Bladder irritation [Unknown]
